FAERS Safety Report 16910657 (Version 6)
Quarter: 2020Q2

REPORT INFORMATION
  Report Type: Report from Study
  Country: US (occurrence: US)
  Receive Date: 20191012
  Receipt Date: 20200623
  Transmission Date: 20200713
  Serious: Yes (Hospitalization, Other)
  Sender: FDA-Public Use
  Company Number: US-ROCHE-2428365

PATIENT
  Age: 81 Year
  Sex: Male
  Weight: 81.1 kg

DRUGS (21)
  1. FUROSEMIDE. [Concomitant]
     Active Substance: FUROSEMIDE
     Route: 065
     Dates: start: 20191008
  2. ACETAMINOPHEN. [Concomitant]
     Active Substance: ACETAMINOPHEN
     Route: 048
     Dates: start: 20191227
  3. GUADECITABINE [Suspect]
     Active Substance: GUADECITABINE
     Indication: MYELODYSPLASTIC SYNDROME
     Dosage: ON DAYS 1-5
     Route: 058
     Dates: start: 20190927
  4. ZOFRAN [Concomitant]
     Active Substance: ONDANSETRON HYDROCHLORIDE
     Route: 065
     Dates: start: 20190910
  5. FLUCONAZOLE. [Concomitant]
     Active Substance: FLUCONAZOLE
     Route: 065
     Dates: start: 20191005
  6. CIPROFLOXACIN. [Concomitant]
     Active Substance: CIPROFLOXACIN
     Route: 065
     Dates: start: 20150101
  7. OSTEO BI-FLEX [CHONDROITIN SULFATE;GLUCOSAMINE HYDROCHLORIDE] [Concomitant]
     Route: 065
     Dates: start: 20000101
  8. DOCUSATE CALCIUM. [Concomitant]
     Active Substance: DOCUSATE CALCIUM
     Route: 065
     Dates: start: 20190923, end: 20191017
  9. PIPERACILLINUM NATRICUM [Concomitant]
     Dosage: IN SODIUM CHLORIDE (MINIBAG PLUS) 0.9 % 100 ML IVPE. STOPPED ON 27/DEC/2019
     Route: 042
  10. ACYCLOVIR [ACICLOVIR] [Concomitant]
     Active Substance: ACYCLOVIR
     Route: 048
     Dates: start: 20150101
  11. PROSCAR [Concomitant]
     Active Substance: FINASTERIDE
  12. GUADECITABINE [Suspect]
     Active Substance: GUADECITABINE
     Route: 058
     Dates: start: 20191101
  13. JADENU [Concomitant]
     Active Substance: DEFERASIROX
     Route: 065
     Dates: start: 20170101, end: 20191017
  14. MIRALAX [Concomitant]
     Active Substance: POLYETHYLENE GLYCOL 3350
     Route: 065
     Dates: start: 20190910, end: 20190913
  15. SODIUM CHLORIDE 0.9% [Concomitant]
     Active Substance: SODIUM CHLORIDE
     Dosage: STOPPED ON 27/DEC/2019
     Route: 040
  16. FLOMAX [Concomitant]
     Active Substance: TAMSULOSIN HYDROCHLORIDE
  17. ATEZOLIZUMAB. [Suspect]
     Active Substance: ATEZOLIZUMAB
     Indication: MYELODYSPLASTIC SYNDROME
     Dosage: DAYS 8 AND 22
     Route: 042
     Dates: start: 20190927
  18. ATEZOLIZUMAB. [Suspect]
     Active Substance: ATEZOLIZUMAB
     Route: 042
     Dates: start: 20191101
  19. KYTRIL [Concomitant]
     Active Substance: GRANISETRON HYDROCHLORIDE
     Route: 065
     Dates: start: 20190909
  20. LEVOFLOXACIN. [Concomitant]
     Active Substance: LEVOFLOXACIN
     Dosage: 5 MG/ML
     Route: 065
  21. TOBRAMYCIN. [Concomitant]
     Active Substance: TOBRAMYCIN
     Dosage: IN SODIUM CHLORIDE 0.9 % IN 100 ML IVBP (STOPPED ON 27/DEC/2019
     Route: 065

REACTIONS (7)
  - Dysuria [Unknown]
  - Clostridium difficile infection [Unknown]
  - Urinary tract obstruction [Recovered/Resolved]
  - Febrile neutropenia [Unknown]
  - Anaemia [Unknown]
  - Febrile neutropenia [Unknown]
  - Thrombocytopenia [Unknown]

NARRATIVE: CASE EVENT DATE: 20190927
